FAERS Safety Report 11326106 (Version 1)
Quarter: 2015Q3

REPORT INFORMATION
  Report Type: Spontaneous
  Country: US (occurrence: None)
  Receive Date: 20150629
  Receipt Date: 20150629
  Transmission Date: 20151125
  Serious: Yes (Hospitalization)
  Sender: FDA-Public Use
  Company Number: A-US2014-107946

PATIENT
  Age: 64 Year
  Sex: Female

DRUGS (12)
  1. ALENDRONATE (ALENDRONATE SODIUM) [Concomitant]
     Active Substance: ALENDRONATE SODIUM
  2. CELLCEPT (MUCOPHENOLATE MOFETIL) [Concomitant]
  3. GLUCOPHAGE [Concomitant]
     Active Substance: METFORMIN HYDROCHLORIDE
  4. CEPHALEXIN. [Concomitant]
     Active Substance: CEPHALEXIN
  5. ASPIRIN (ACETYLSALICYLIC ACID) [Concomitant]
     Active Substance: ASPIRIN
  6. PRAVASTATIN [Concomitant]
     Active Substance: PRAVASTATIN\PRAVASTATIN SODIUM
  7. OPSUMIT [Suspect]
     Active Substance: MACITENTAN
     Indication: PULMONARY ARTERIAL HYPERTENSION
     Route: 048
     Dates: start: 20141006
  8. CALCIUM [Concomitant]
     Active Substance: CALCIUM
  9. LASIX [Concomitant]
     Active Substance: FUROSEMIDE
  10. LEVOTHYROXINE. [Concomitant]
     Active Substance: LEVOTHYROXINE
  11. RIOCIGUAT [Concomitant]
     Active Substance: RIOCIGUAT
  12. OMEPRAZOLE. [Concomitant]
     Active Substance: OMEPRAZOLE

REACTIONS (5)
  - Dizziness [None]
  - Haemoglobin decreased [None]
  - Transfusion [None]
  - Anaemia [None]
  - Fatigue [None]

NARRATIVE: CASE EVENT DATE: 20141104
